FAERS Safety Report 20977351 (Version 1)
Quarter: 2022Q2

REPORT INFORMATION
  Report Type: Report from Study
  Country: BR (occurrence: BR)
  Receive Date: 20220617
  Receipt Date: 20220617
  Transmission Date: 20220721
  Serious: Yes (Other)
  Sender: FDA-Public Use
  Company Number: BR-JNJFOC-20220619099

PATIENT
  Sex: Male
  Weight: 74 kg

DRUGS (1)
  1. INFLIXIMAB [Suspect]
     Active Substance: INFLIXIMAB
     Indication: Rheumatoid arthritis
     Dosage: 3 VIALS
     Route: 041
     Dates: start: 20161003

REACTIONS (4)
  - Deafness [Unknown]
  - Weight decreased [Unknown]
  - Herpes virus infection [Unknown]
  - Product dose omission issue [Unknown]
